FAERS Safety Report 15435945 (Version 2)
Quarter: 2019Q3

REPORT INFORMATION
  Report Type: Spontaneous
  Country: JP (occurrence: JP)
  Receive Date: 20180927
  Receipt Date: 20190812
  Transmission Date: 20191004
  Serious: Yes (Death, Hospitalization, Other)
  Sender: FDA-Public Use
  Company Number: JP-ASTRAZENECA-2018SF12427

PATIENT
  Age: 55 Year
  Sex: Male

DRUGS (11)
  1. AZOSEMIDE [Suspect]
     Active Substance: AZOSEMIDE
     Route: 065
     Dates: start: 20180721, end: 20181107
  2. ACELIO [Concomitant]
     Active Substance: ACETAMINOPHEN
     Dates: start: 20180704
  3. NEUTROGIN [Concomitant]
     Active Substance: LENOGRASTIM
     Dates: start: 20180710
  4. CANCIDAS [Suspect]
     Active Substance: CASPOFUNGIN ACETATE
     Dosage: 50.0MG UNKNOWN
     Route: 041
     Dates: start: 20180714
  5. PROGRAF [Suspect]
     Active Substance: TACROLIMUS\TACROLIMUS ANHYDROUS
     Indication: PROPHYLAXIS
     Route: 065
     Dates: start: 20180708, end: 20181002
  6. LUPRAC [Suspect]
     Active Substance: TORSEMIDE
     Dosage: 4.0MG UNKNOWN
     Route: 048
     Dates: start: 20180724
  7. ATOVAQUONE. [Suspect]
     Active Substance: ATOVAQUONE
     Dosage: 10.0ML UNKNOWN
     Route: 065
     Dates: start: 20180707
  8. FINIBAX [Suspect]
     Active Substance: DORIPENEM MONOHYDRATE
     Route: 042
     Dates: start: 20180725
  9. CUBICIN [Suspect]
     Active Substance: DAPTOMYCIN
     Dosage: 420.0MG UNKNOWN
     Route: 042
     Dates: start: 20180726
  10. SAMSCA [Suspect]
     Active Substance: TOLVAPTAN
     Route: 048
     Dates: start: 20181107
  11. NEXIUM [Suspect]
     Active Substance: ESOMEPRAZOLE MAGNESIUM
     Dosage: UNKNOWN
     Route: 048

REACTIONS (4)
  - Renal impairment [Recovering/Resolving]
  - Adverse event [Unknown]
  - Hepatic function abnormal [Recovering/Resolving]
  - Pulmonary vein occlusion [Fatal]

NARRATIVE: CASE EVENT DATE: 20180801
